FAERS Safety Report 7586600-9 (Version None)
Quarter: 2011Q3

REPORT INFORMATION
  Report Type: 
  Country: None (occurrence: None)
  Receive Date: 20110701
  Receipt Date: 20110623
  Transmission Date: 20111222
  Serious: Yes (Other)
  Sender: FDA-Public Use
  Company Number: US-US-EMD SERONO, INC.-7067744

PATIENT
  Sex: Female

DRUGS (5)
  1. KLONOPIN [Concomitant]
  2. ABILIFY [Concomitant]
  3. UNSPECIFIED MEDICATION [Concomitant]
     Indication: MUSCLE SPASMS
  4. REBIF [Suspect]
     Indication: PRODUCT USED FOR UNKNOWN INDICATION
     Route: 058
     Dates: start: 20090914
  5. CYMBALTA [Concomitant]

REACTIONS (3)
  - PITUITARY CYST [None]
  - CENTRAL NERVOUS SYSTEM LESION [None]
  - INJECTION SITE DISCOLOURATION [None]
